FAERS Safety Report 12952936 (Version 1)
Quarter: 2016Q4

REPORT INFORMATION
  Report Type: Spontaneous
  Country: US (occurrence: US)
  Receive Date: 20161117
  Receipt Date: 20161117
  Transmission Date: 20170207
  Serious: No
  Sender: FDA-Public Use
  Company Number: US-BAYER-2016-216505

PATIENT
  Age: 23 Year
  Sex: Female

DRUGS (1)
  1. MIRENA [Suspect]
     Active Substance: LEVONORGESTREL
     Indication: CONTRACEPTION
     Dosage: 20 MCG/24HR, CONT
     Route: 015
     Dates: start: 20160503

REACTIONS (6)
  - Abdominal pain lower [None]
  - Procedural pain [None]
  - Device issue [None]
  - Amenorrhoea [None]
  - Menstruation irregular [None]
  - Menorrhagia [None]

NARRATIVE: CASE EVENT DATE: 2016
